FAERS Safety Report 7419211-6 (Version None)
Quarter: 2011Q2

REPORT INFORMATION
  Report Type: 
  Country: None (occurrence: None)
  Receive Date: 20110415
  Receipt Date: 20110405
  Transmission Date: 20111010
  Serious: Yes (Hospitalization)
  Sender: FDA-Public Use
  Company Number: FR-GENENTECH-316446

PATIENT
  Sex: Female
  Weight: 79 kg

DRUGS (8)
  1. CORTANCYL [Concomitant]
     Indication: PRODUCT USED FOR UNKNOWN INDICATION
     Dosage: UNK
     Route: 048
     Dates: start: 20110204
  2. LEVOTHYROX [Concomitant]
     Indication: PRODUCT USED FOR UNKNOWN INDICATION
     Dosage: 100 A?G, UNK
     Route: 048
     Dates: end: 20110309
  3. TRAMADOL [Concomitant]
     Indication: PRODUCT USED FOR UNKNOWN INDICATION
     Dosage: 100 MG, UNK
  4. ATACAND [Concomitant]
     Indication: PRODUCT USED FOR UNKNOWN INDICATION
     Dosage: 15 MG, UNK
  5. ZOCOR [Concomitant]
     Indication: PRODUCT USED FOR UNKNOWN INDICATION
     Dosage: 20 MG, UNK
  6. FOSAVANCE [Concomitant]
     Indication: PRODUCT USED FOR UNKNOWN INDICATION
     Dosage: 1 DF, 1/WEEK
  7. MABTHERA [Suspect]
     Indication: PEMPHIGUS
     Dosage: 1 G, UNK
     Route: 042
     Dates: start: 20110224, end: 20110224
  8. LEVOTHYROX [Concomitant]
     Dosage: DOSING FREQ: DAILY
     Route: 048

REACTIONS (2)
  - PERIPHERAL SENSORY NEUROPATHY [None]
  - CEREBELLAR SYNDROME [None]
